FAERS Safety Report 5776736-7 (Version None)
Quarter: 2008Q2

REPORT INFORMATION
  Report Type: 
  Country: None (occurrence: None)
  Receive Date: 20080618
  Receipt Date: 20080418
  Transmission Date: 20081010
  Serious: No
  Sender: FDA-Public Use
  Company Number: US-ASTRAZENECA-2008UW04133

PATIENT
  Age: 24 Year
  Sex: Female
  Weight: 39 kg

DRUGS (3)
  1. SYMBICORT [Suspect]
     Indication: INFLUENZA
     Dosage: 80/4.5 UG (2 PUFFS)
     Route: 055
     Dates: start: 20080227
  2. CORTISONE [Concomitant]
     Route: 030
  3. ACELOX [Concomitant]

REACTIONS (6)
  - CHEST DISCOMFORT [None]
  - DRY THROAT [None]
  - DYSPNOEA [None]
  - HEART RATE IRREGULAR [None]
  - NERVOUSNESS [None]
  - THROAT TIGHTNESS [None]
